FAERS Safety Report 20643111 (Version 2)
Quarter: 2022Q2

REPORT INFORMATION
  Report Type: Spontaneous
  Country: IN (occurrence: IN)
  Receive Date: 20220328
  Receipt Date: 20220405
  Transmission Date: 20220720
  Serious: Yes (Other)
  Sender: FDA-Public Use
  Company Number: IN-ASTELLAS-2022US011420

PATIENT
  Age: 42 Year
  Sex: Male

DRUGS (2)
  1. ISAVUCONAZOLE [Suspect]
     Active Substance: ISAVUCONAZOLE
     Indication: Rhinocerebral mucormycosis
     Route: 048
     Dates: start: 20210701
  2. ISAVUCONAZOLE [Suspect]
     Active Substance: ISAVUCONAZOLE
     Indication: Mucormycosis
     Route: 048
     Dates: start: 20210703

REACTIONS (1)
  - Brain abscess [Recovering/Resolving]
